FAERS Safety Report 12139487 (Version 2)
Quarter: 2019Q3

REPORT INFORMATION
  Report Type: Spontaneous
  Country: DE (occurrence: DE)
  Receive Date: 20160303
  Receipt Date: 20190705
  Transmission Date: 20191004
  Serious: Yes (Congenital Anomaly, Other)
  Sender: FDA-Public Use
  Company Number: DE-AUROBINDO-AUR-APL-2016-01918

PATIENT

DRUGS (5)
  1. LEVETIRACETAM. [Suspect]
     Active Substance: LEVETIRACETAM
     Indication: EPILEPSY
     Dosage: 4000 MG, DAILY
     Route: 064
     Dates: start: 20150224, end: 20150602
  2. CARBAMAZEPINE. [Suspect]
     Active Substance: CARBAMAZEPINE
     Indication: EPILEPSY
     Dosage: 1200 MG, DAILY
     Route: 064
     Dates: start: 20141226
  3. LAMOTRIGINE. [Concomitant]
     Active Substance: LAMOTRIGINE
     Indication: EPILEPSY
     Dosage: 25 MG, DAILY
     Route: 064
     Dates: start: 20150217, end: 20150224
  4. FOLIC ACID. [Concomitant]
     Active Substance: FOLIC ACID
     Indication: PROPHYLAXIS OF NEURAL TUBE DEFECT
     Dosage: UNK
     Route: 064
     Dates: start: 20150220, end: 20150602
  5. CARBAMAZEPINE. [Suspect]
     Active Substance: CARBAMAZEPINE
     Dosage: 1200 MG, DAILY
     Route: 064
     Dates: start: 20150109, end: 20150602

REACTIONS (2)
  - Maternal exposure during pregnancy [Unknown]
  - Congenital hydrocephalus [Not Recovered/Not Resolved]

NARRATIVE: CASE EVENT DATE: 20150224
